FAERS Safety Report 4661145-4 (Version None)
Quarter: 2005Q2

REPORT INFORMATION
  Report Type: 
  Country: None (occurrence: None)
  Receive Date: 20050427
  Receipt Date: 20050218
  Transmission Date: 20051028
  Serious: Yes (Other)
  Sender: FDA-Public Use
  Company Number: 211919

PATIENT
  Age: 62 Year
  Sex: Female

DRUGS (12)
  1. XOLAIR [Suspect]
     Indication: ASTHMA
     Dosage: SEE IMAGE
     Dates: start: 20040414, end: 20041101
  2. XOLAIR [Suspect]
     Indication: ASTHMA
     Dosage: SEE IMAGE
     Dates: start: 20041201, end: 20041201
  3. CARDURA [Concomitant]
  4. ADVAIR (FLUTICASONE PROPINATE, SALMETEROL XINAFOATE) [Concomitant]
  5. DOXAZOSIN MESYLATE [Concomitant]
  6. SINGULAIR [Concomitant]
  7. PRILOSEC [Concomitant]
  8. HYDROCHLOROTHIAZIDE [Concomitant]
  9. VERAPAMIL [Concomitant]
  10. ALBUTEROL (ALBUTEROL, ALBUTEROL SULFATE) [Concomitant]
  11. COMBIVENT (ALBUEROL SULFATE, ALBUTEROL, IPRATROPIUM BROMIDE) [Concomitant]
  12. O2 (OXYGEN) [Concomitant]

REACTIONS (1)
  - COLON CANCER [None]
